FAERS Safety Report 5695135-X (Version None)
Quarter: 2008Q2

REPORT INFORMATION
  Report Type: 
  Country: None (occurrence: None)
  Receive Date: 20080404
  Receipt Date: 20080306
  Transmission Date: 20081010
  Serious: Yes (Other)
  Sender: FDA-Public Use
  Company Number: BG-PFIZER INC-2008021632

PATIENT
  Age: 23 Year
  Sex: Male

DRUGS (5)
  1. REVATIO [Suspect]
     Indication: PULMONARY HYPERTENSION
     Route: 048
     Dates: start: 20080301, end: 20080304
  2. ISOPTIN [Concomitant]
     Route: 048
  3. PREDNISOLONE [Concomitant]
     Route: 048
  4. TAVANIC [Concomitant]
     Route: 048
     Dates: start: 20080223, end: 20080229
  5. VIAGRA [Concomitant]
     Route: 048

REACTIONS (2)
  - ARTHRALGIA [None]
  - MUSCLE DISORDER [None]
